FAERS Safety Report 5275269-4 (Version None)
Quarter: 2007Q1

REPORT INFORMATION
  Report Type: 
  Country: None (occurrence: None)
  Receive Date: 20061213
  Receipt Date: 20060203
  Transmission Date: 20070707
  Serious: Yes (Hospitalization)
  Sender: FDA-Public Use
  Company Number: 2006UW01935

PATIENT
  Age: 52 Year
  Sex: Female

DRUGS (3)
  1. SEROQUEL [Suspect]
     Dosage: 600 MG;PO
     Route: 048
  2. SEROQUEL [Suspect]
     Dosage: 900 MG;PO
     Route: 048
  3. SEROQUEL [Suspect]
     Dosage: 400 MG;PO
     Route: 048

REACTIONS (3)
  - DEHYDRATION [None]
  - HEADACHE [None]
  - VOMITING [None]
